FAERS Safety Report 17293118 (Version 1)
Quarter: 2020Q1

REPORT INFORMATION
  Report Type: Spontaneous
  Country: US (occurrence: US)
  Receive Date: 20200102
  Receipt Date: 20200102
  Transmission Date: 20200409
  Serious: Yes (Death)
  Sender: FDA-Public Use
  Company Number: None

PATIENT
  Age: 72 Year
  Sex: Female

DRUGS (1)
  1. ERLOTINIB 150MG TAB [Suspect]
     Active Substance: ERLOTINIB
     Indication: PLEURAL EFFUSION
     Route: 048
     Dates: start: 20191108, end: 20191129

REACTIONS (1)
  - Death [None]

NARRATIVE: CASE EVENT DATE: 20191129
